FAERS Safety Report 16732730 (Version 1)
Quarter: 2019Q3

REPORT INFORMATION
  Report Type: Spontaneous
  Country: CA (occurrence: CA)
  Receive Date: 20190823
  Receipt Date: 20190823
  Transmission Date: 20191005
  Serious: Yes (Hospitalization, Other)
  Sender: FDA-Public Use
  Company Number: CA-AUROBINDO-AUR-APL-2019-054232

PATIENT

DRUGS (10)
  1. TAMSULOSIN [Interacting]
     Active Substance: TAMSULOSIN
     Indication: BENIGN PROSTATIC HYPERPLASIA
     Dosage: 0.4 MILLIGRAM, DAILY
     Route: 065
  2. PENTASA [Concomitant]
     Active Substance: MESALAMINE
     Indication: PRODUCT USED FOR UNKNOWN INDICATION
     Dosage: UNK
     Route: 065
  3. ATACAND [Concomitant]
     Active Substance: CANDESARTAN CILEXETIL
     Indication: PRODUCT USED FOR UNKNOWN INDICATION
     Dosage: UNK
     Route: 065
  4. TAMSULOSIN HYDROCHLORIDE. [Interacting]
     Active Substance: TAMSULOSIN HYDROCHLORIDE
     Indication: BENIGN PROSTATIC HYPERPLASIA
     Dosage: 0.4 MILLIGRAM, DAILY
     Route: 065
  5. ABILIFY [Interacting]
     Active Substance: ARIPIPRAZOLE
     Indication: DEPRESSION
     Dosage: 2.0 MILLIGRAM, DAILY
     Route: 065
  6. PROZAC [Interacting]
     Active Substance: FLUOXETINE HYDROCHLORIDE
     Indication: DEPRESSION
     Dosage: 80.0 MILLIGRAM, DAILY
     Route: 065
  7. FLUOXETINE [Interacting]
     Active Substance: FLUOXETINE HYDROCHLORIDE
     Indication: DEPRESSION
     Dosage: 80.0 MILLIGRAM, DAILY
     Route: 065
  8. HYDROCHLOROTHIAZIDE. [Concomitant]
     Active Substance: HYDROCHLOROTHIAZIDE
     Indication: PRODUCT USED FOR UNKNOWN INDICATION
     Dosage: UNK
     Route: 065
  9. WELLBUTRIN [Concomitant]
     Active Substance: BUPROPION HYDROCHLORIDE
     Indication: PRODUCT USED FOR UNKNOWN INDICATION
     Dosage: UNK
     Route: 065
  10. FLUOXETINE [Suspect]
     Active Substance: FLUOXETINE HYDROCHLORIDE
     Indication: PRODUCT USED FOR UNKNOWN INDICATION
     Dosage: 80.0 MILLIGRAM, DAILY
     Route: 065

REACTIONS (4)
  - Electrocardiogram QT prolonged [Unknown]
  - Bradycardia [Unknown]
  - Drug interaction [Unknown]
  - Dyspnoea [Unknown]
